FAERS Safety Report 16088250 (Version 1)
Quarter: 2019Q2

REPORT INFORMATION
  Report Type: Spontaneous
  Country: US (occurrence: US)
  Receive Date: 20190318
  Receipt Date: 20190318
  Transmission Date: 20190711
  Serious: Yes (Other)
  Sender: FDA-Public Use
  Company Number: None

PATIENT
  Age: 61 Year
  Sex: Female
  Weight: 66.6 kg

DRUGS (5)
  1. OTC PRN FISH OIL [Concomitant]
  2. VITAMIN D NOS [Concomitant]
     Active Substance: VITAMIN D NOS
  3. TYMLOS [Suspect]
     Active Substance: ABALOPARATIDE
     Indication: OSTEOPOROSIS
     Dosage: ?          QUANTITY:1 INJECTION(S);OTHER ROUTE:INJECTION 2^ AWAY FROM BELLY BUTTON?
     Dates: start: 20190308, end: 20190317
  4. CALCIUM 630 MG [Concomitant]
  5. ZYRTEC [Concomitant]
     Active Substance: CETIRIZINE HYDROCHLORIDE

REACTIONS (5)
  - Heart rate increased [None]
  - Tinnitus [None]
  - Palpitations [None]
  - Fatigue [None]
  - Arthralgia [None]

NARRATIVE: CASE EVENT DATE: 20190317
